FAERS Safety Report 4302459-7 (Version None)
Quarter: 2004Q1

REPORT INFORMATION
  Report Type: 
  Country: None (occurrence: None)
  Receive Date: 20040218
  Receipt Date: 20031222
  Transmission Date: 20041129
  Serious: Yes (Hospitalization)
  Sender: FDA-Public Use
  Company Number: 200320377US

PATIENT
  Age: 48 Year
  Sex: Male
  Weight: 113.6 kg

DRUGS (6)
  1. LANTUS [Suspect]
     Dosage: 30 U
  2. HUMALOG [Concomitant]
  3. LIPITOR [Concomitant]
  4. NEURONTIN [Concomitant]
  5. PRILOSEC [Concomitant]
  6. SETRALINE HYDROCHLORIDE (ZOLOFT) [Concomitant]

REACTIONS (3)
  - BLOOD GLUCOSE INCREASED [None]
  - HYPOGLYCAEMIC COMA [None]
  - LOSS OF CONSCIOUSNESS [None]
